FAERS Safety Report 15065507 (Version 2)
Quarter: 2018Q3

REPORT INFORMATION
  Report Type: Spontaneous
  Country: GB (occurrence: GB)
  Receive Date: 20180626
  Receipt Date: 20180814
  Transmission Date: 20181010
  Serious: Yes (Other)
  Sender: FDA-Public Use
  Company Number: GB-TEVA-2018-GB-857998

PATIENT
  Age: 44 Year
  Sex: Male

DRUGS (2)
  1. PREGABALIN. [Suspect]
     Active Substance: PREGABALIN
     Indication: PRODUCT USED FOR UNKNOWN INDICATION
     Dosage: DOSAGE FORM: UNSPECIFIED, BETWEEN FEBRUARY 2017 AND MAY 2017
     Route: 065
     Dates: start: 20170201, end: 20170501
  2. METHYLPHENIDATE. [Suspect]
     Active Substance: METHYLPHENIDATE
     Indication: PRODUCT USED FOR UNKNOWN INDICATION
     Dosage: UNK
     Route: 065
     Dates: start: 20170201, end: 20170501

REACTIONS (4)
  - Loss of consciousness [Recovered/Resolved]
  - Drug abuse [Recovered/Resolved]
  - Prescription drug used without a prescription [Recovered/Resolved]
  - Drug dependence [Recovered/Resolved]
